FAERS Safety Report 9330568 (Version 1)
Quarter: 2013Q2

REPORT INFORMATION
  Report Type: Spontaneous
  Country: US (occurrence: US)
  Receive Date: 20130605
  Receipt Date: 20130605
  Transmission Date: 20140414
  Serious: Yes (Other)
  Sender: FDA-Public Use
  Company Number: PHEH2013US012079

PATIENT
  Sex: Female

DRUGS (9)
  1. RECLAST [Suspect]
     Dosage: UNK UKN, ONCE A YEAR
     Route: 042
  2. CALCIUM [Concomitant]
  3. VITAMIN D [Concomitant]
  4. NATTOKINASE [Concomitant]
  5. BABY ASPIRIN [Concomitant]
  6. OSTEO BI-FLEX [Concomitant]
  7. BENADRYL                           /00647601/ [Concomitant]
  8. VIACTIV                            /01483701/ [Concomitant]
  9. SIMVASTATIN [Concomitant]

REACTIONS (4)
  - Systemic lupus erythematosus [Unknown]
  - Heart rate increased [Not Recovered/Not Resolved]
  - Pyrexia [Unknown]
  - Arthralgia [Unknown]
